FAERS Safety Report 5269473-9 (Version None)
Quarter: 2007Q1

REPORT INFORMATION
  Report Type: 
  Country: None (occurrence: None)
  Receive Date: 20070320
  Receipt Date: 20070314
  Transmission Date: 20070707
  Serious: No
  Sender: FDA-Public Use
  Company Number: SK-ELI_LILLY_AND_COMPANY-SK200702002894

PATIENT
  Age: 47 Year
  Sex: Male

DRUGS (7)
  1. ZYPREXA [Suspect]
     Indication: SCHIZOPHRENIA, PARANOID TYPE
     Dosage: 10 MG, EACH MORNING
     Route: 048
     Dates: start: 20061101
  2. ZYPREXA [Suspect]
     Dosage: 20 MG, EACH EVENING
     Route: 048
  3. ZYPREXA [Suspect]
     Dosage: 10 MG, DAILY (1/D)
     Route: 048
  4. LEPONEX                                 /SCH/ [Concomitant]
     Indication: SCHIZOPHRENIA, PARANOID TYPE
     Dosage: 125 MG, 3/D
     Route: 048
     Dates: start: 20020101
  5. VASOCARDIN [Concomitant]
     Indication: HYPERKINETIC HEART SYNDROME
     Dosage: 50 MG, 2/D
     Route: 048
  6. AKINETON [Concomitant]
     Dosage: 2 MG, 3/D
     Route: 048
  7. PROTHAZIN [Concomitant]
     Dosage: 25 MG, EACH EVENING
     Route: 048

REACTIONS (4)
  - BLOOD GLUCOSE INCREASED [None]
  - HEPATIC ENZYME INCREASED [None]
  - LEUKOCYTOSIS [None]
  - OVERDOSE [None]
